FAERS Safety Report 10198576 (Version 1)
Quarter: 2014Q2

REPORT INFORMATION
  Report Type: Spontaneous
  Country: US (occurrence: US)
  Receive Date: 20140527
  Receipt Date: 20140527
  Transmission Date: 20141212
  Serious: No
  Sender: FDA-Public Use
  Company Number: US-NOVEN-13US007156

PATIENT
  Age: 9 Year
  Sex: Male
  Weight: 26.3 kg

DRUGS (2)
  1. DAYTRANA [Suspect]
     Indication: ATTENTION DEFICIT/HYPERACTIVITY DISORDER
     Dosage: 15 MG, QD
     Route: 062
     Dates: start: 20130619
  2. FOCALIN [Concomitant]
     Indication: ATTENTION DEFICIT/HYPERACTIVITY DISORDER
     Dosage: 15 MG, UNK
     Route: 048
     Dates: end: 20130618

REACTIONS (3)
  - Disturbance in social behaviour [Unknown]
  - Drug ineffective [Unknown]
  - Application site erythema [Unknown]
